FAERS Safety Report 18910407 (Version 1)
Quarter: 2021Q1

REPORT INFORMATION
  Report Type: Spontaneous
  Country: US (occurrence: US)
  Receive Date: 20210218
  Receipt Date: 20210218
  Transmission Date: 20210420
  Serious: No
  Sender: FDA-Public Use
  Company Number: US-DRREDDYS-USA/USA/21/0131743

PATIENT
  Age: 31 Year
  Sex: Female

DRUGS (1)
  1. SUMATRIPTAN INJECTION USP, 6 MG/0.5 ML [Suspect]
     Active Substance: SUMATRIPTAN
     Indication: MIGRAINE
     Dosage: 6 MG/ 0.5 ML, ONE DOSE AS NEEDED AND MAY REPEAT IN 1 HOUR IF NEEDED
     Route: 058

REACTIONS (2)
  - Product dose omission issue [Unknown]
  - Product quality issue [Unknown]
